FAERS Safety Report 10969600 (Version 1)
Quarter: 2015Q1

REPORT INFORMATION
  Report Type: Spontaneous
  Country: US (occurrence: US)
  Receive Date: 20150331
  Receipt Date: 20150331
  Transmission Date: 20150721
  Serious: No
  Sender: FDA-Public Use
  Company Number: US-BIOGENIDEC-2015BI037522

PATIENT
  Sex: Female

DRUGS (1)
  1. TECFIDERA [Suspect]
     Active Substance: DIMETHYL FUMARATE
     Indication: MULTIPLE SCLEROSIS
     Dates: start: 20130701

REACTIONS (6)
  - Erythema [Recovered/Resolved]
  - Pallor [Recovered/Resolved]
  - Weight increased [Not Recovered/Not Resolved]
  - Hot flush [Recovered/Resolved]
  - Flushing [Recovered/Resolved]
  - Alopecia [Not Recovered/Not Resolved]
